FAERS Safety Report 9449586 (Version 2)
Quarter: 2013Q3

REPORT INFORMATION
  Report Type: Report from Study
  Country: US (occurrence: US)
  Receive Date: 20130809
  Receipt Date: 20130905
  Transmission Date: 20140515
  Serious: Yes (Hospitalization)
  Sender: FDA-Public Use
  Company Number: US-SHIRE-ALL1-2013-05285

PATIENT
  Age: 5 Year
  Sex: Male

DRUGS (1)
  1. IDURSULFASE [Suspect]
     Indication: MUCOPOLYSACCHARIDOSIS II
     Dosage: UNK, UNKNOWN
     Route: 041
     Dates: start: 20091014

REACTIONS (2)
  - Asthma [Recovered/Resolved]
  - Otitis media [Recovered/Resolved]
